FAERS Safety Report 23313894 (Version 1)
Quarter: 2023Q4

REPORT INFORMATION
  Report Type: Spontaneous
  Country: US (occurrence: US)
  Receive Date: 20231219
  Receipt Date: 20231219
  Transmission Date: 20240109
  Serious: Yes (Hospitalization)
  Sender: FDA-Public Use
  Company Number: US-TEVA-VS-3135937

PATIENT
  Age: 70 Year

DRUGS (1)
  1. PREDNISONE [Suspect]
     Active Substance: PREDNISONE
     Indication: Necrotising myositis
     Route: 065

REACTIONS (3)
  - Hyperglycaemia [Unknown]
  - Chorea [Recovering/Resolving]
  - Ballismus [Recovering/Resolving]
